FAERS Safety Report 5416599-2 (Version None)
Quarter: 2007Q3

REPORT INFORMATION
  Report Type: 
  Country: None (occurrence: None)
  Receive Date: 20070816
  Receipt Date: 20070807
  Transmission Date: 20080115
  Serious: Yes (Death)
  Sender: FDA-Public Use
  Company Number: CN-AVENTIS-200717242GDDC

PATIENT
  Age: 63 Year
  Sex: Male

DRUGS (5)
  1. TAXOTERE [Suspect]
     Indication: NON-SMALL CELL LUNG CANCER
     Route: 042
     Dates: start: 20060801, end: 20060914
  2. GEMCITABINE HCL [Suspect]
     Indication: NON-SMALL CELL LUNG CANCER
     Route: 042
     Dates: start: 20060801, end: 20060914
  3. CISPLATIN [Suspect]
     Indication: NON-SMALL CELL LUNG CANCER
     Route: 042
     Dates: start: 20060321, end: 20060425
  4. ETOPOSIDE [Suspect]
     Indication: NON-SMALL CELL LUNG CANCER
     Route: 042
     Dates: start: 20060321, end: 20060422
  5. RADIATION [Suspect]
     Indication: NON-SMALL CELL LUNG CANCER
     Dosage: DOSE: 180 CGY
     Dates: start: 20060321, end: 20060422

REACTIONS (1)
  - HAEMOPTYSIS [None]
